FAERS Safety Report 6543101-4 (Version None)
Quarter: 2010Q1

REPORT INFORMATION
  Report Type: 
  Country: None (occurrence: None)
  Receive Date: 20100120
  Receipt Date: 20100113
  Transmission Date: 20100710
  Serious: Yes (Hospitalization)
  Sender: FDA-Public Use
  Company Number: PHHY2009HU54562

PATIENT
  Sex: Female

DRUGS (3)
  1. STALEVO 100 [Suspect]
     Indication: PARKINSON'S DISEASE
     Route: 048
  2. CLONAZEPAM [Concomitant]
     Dosage: 2 MG, TID
     Dates: start: 20080801
  3. TENAXUM [Concomitant]
     Dosage: 1 DF, BID

REACTIONS (5)
  - ASTHENIA [None]
  - HEADACHE [None]
  - HYPONATRAEMIA [None]
  - MUSCLE SPASMS [None]
  - TREMOR [None]
